FAERS Safety Report 21492763 (Version 6)
Quarter: 2023Q1

REPORT INFORMATION
  Report Type: Spontaneous
  Country: CA (occurrence: CA)
  Receive Date: 20221021
  Receipt Date: 20230124
  Transmission Date: 20230417
  Serious: Yes (Other)
  Sender: FDA-Public Use
  Company Number: CA-PFIZER INC-2021443906

PATIENT
  Age: 62 Year
  Sex: Male

DRUGS (15)
  1. RUXIENCE [Suspect]
     Active Substance: RITUXIMAB-PVVR
     Indication: Glomerulonephritis membranous
     Dosage: 1000 MG, DOSE DETAILS NOT SPECIFIED
     Route: 042
     Dates: start: 202008, end: 202008
  2. RUXIENCE [Suspect]
     Active Substance: RITUXIMAB-PVVR
     Dosage: 1000 MG, DOSE DETAILS NOT SPECIFIED
     Route: 042
     Dates: start: 202008, end: 202208
  3. RUXIENCE [Suspect]
     Active Substance: RITUXIMAB-PVVR
     Dosage: 1 G EVERY 2 WEEKS (1000 MILLIGRAMS) LEFT HAND
     Route: 042
     Dates: start: 20210721
  4. RUXIENCE [Suspect]
     Active Substance: RITUXIMAB-PVVR
     Dosage: 1000 MG, DOSE DETAILS NOT SPECIFIED
     Route: 042
     Dates: start: 202107, end: 202107
  5. RUXIENCE [Suspect]
     Active Substance: RITUXIMAB-PVVR
     Dosage: 1 G EVERY 2 WEEKS (1000 MILLIGRAMS) LEFT HAND
     Route: 042
     Dates: start: 20210803
  6. RUXIENCE [Suspect]
     Active Substance: RITUXIMAB-PVVR
     Dosage: 1000 MG, AT DAYS: 0, 14, 42
     Route: 042
     Dates: start: 20221107
  7. RUXIENCE [Suspect]
     Active Substance: RITUXIMAB-PVVR
     Dosage: 1000 MG, AT DAYS: 0, 14, 42
     Route: 042
     Dates: start: 20221107, end: 20221121
  8. RUXIENCE [Suspect]
     Active Substance: RITUXIMAB-PVVR
     Dosage: 1000 MG DAY 1 AND DAY 15, THEN ONE MONTH AFTER DAY 15 NOT YET STARTED
     Route: 042
  9. RUXIENCE [Suspect]
     Active Substance: RITUXIMAB-PVVR
     Dosage: 1000 MG, AT DAYS: 0, 14, 42
     Route: 042
     Dates: start: 20221121
  10. ACETAMINOPHEN [Concomitant]
     Active Substance: ACETAMINOPHEN
     Indication: Premedication
     Dosage: 650 MG
     Route: 048
     Dates: start: 20210721
  11. ACETAMINOPHEN [Concomitant]
     Active Substance: ACETAMINOPHEN
     Dosage: 600 MG
     Route: 048
     Dates: start: 20210803
  12. DIPHENHYDRAMINE [Concomitant]
     Active Substance: DIPHENHYDRAMINE
     Indication: Premedication
     Dosage: 50 MG
     Route: 048
     Dates: start: 20210721
  13. DIPHENHYDRAMINE [Concomitant]
     Active Substance: DIPHENHYDRAMINE
     Dosage: 50 MG
     Route: 048
     Dates: start: 20210803
  14. METHYLPREDNISOLONE [Concomitant]
     Active Substance: METHYLPREDNISOLONE
     Dosage: 100 MG
     Route: 042
     Dates: start: 20210803
  15. SOLU-MEDROL [Concomitant]
     Active Substance: METHYLPREDNISOLONE SODIUM SUCCINATE
     Indication: Premedication
     Dosage: 100 UG
     Route: 042
     Dates: start: 20210721

REACTIONS (12)
  - Blood pressure increased [Not Recovered/Not Resolved]
  - Renal impairment [Unknown]
  - Transient ischaemic attack [Unknown]
  - Condition aggravated [Not Recovered/Not Resolved]
  - Off label use [Unknown]
  - Off label use [Unknown]
  - Off label use [Unknown]
  - Phospholipase A2 activity increased [Unknown]
  - Proteinuria [Unknown]
  - Blood albumin decreased [Unknown]
  - Oedema [Unknown]
  - Urine albumin/creatinine ratio abnormal [Unknown]

NARRATIVE: CASE EVENT DATE: 20200801
